FAERS Safety Report 6646228-1 (Version None)
Quarter: 2010Q1

REPORT INFORMATION
  Report Type: 
  Country: None (occurrence: None)
  Receive Date: 20100323
  Receipt Date: 20100219
  Transmission Date: 20100710
  Serious: No
  Sender: FDA-Public Use
  Company Number: US-BAYER-201012430BCC

PATIENT
  Age: 95 Year
  Sex: Female
  Weight: 77 kg

DRUGS (3)
  1. ALEVE [Suspect]
     Indication: NECK PAIN
     Dosage: TOTAL DAILY DOSE: 440 MG  UNIT DOSE: 220 MG
     Route: 048
     Dates: start: 20100212
  2. NOVOLIN N [Concomitant]
     Dosage: 70/30
     Route: 065
  3. SYNTHROID [Concomitant]
     Route: 065

REACTIONS (1)
  - POLYURIA [None]
